FAERS Safety Report 4543059-3 (Version None)
Quarter: 2004Q4

REPORT INFORMATION
  Report Type: 
  Country: None (occurrence: None)
  Receive Date: 20041229
  Receipt Date: 20041213
  Transmission Date: 20050328
  Serious: Yes (Hospitalization)
  Sender: FDA-Public Use
  Company Number: 2004116963

PATIENT
  Age: 81 Year
  Sex: Female

DRUGS (5)
  1. BEXTRA [Suspect]
     Indication: OSTEOARTHRITIS
     Dosage: 10 MG (10 MG, 1 IN 1 D)
  2. ACETYLSALICYLIC ACID (ADETYLSALICYLIC ACID) [Suspect]
     Indication: ILL-DEFINED DISORDER
     Dosage: 81 MG
  3. OMEPRAZOLE [Concomitant]
  4. DIMENHYDRINATE (DIMENHYDRINATE) [Concomitant]
  5. RISEDRONIC ACID (RISEDRONIC ACID) [Concomitant]

REACTIONS (4)
  - EXTRAVASATION BLOOD [None]
  - INFLAMMATION [None]
  - PURPURA [None]
  - RASH ERYTHEMATOUS [None]
